FAERS Safety Report 19809851 (Version 1)
Quarter: 2021Q3

REPORT INFORMATION
  Report Type: Spontaneous
  Country: US (occurrence: US)
  Receive Date: 20210908
  Receipt Date: 20210908
  Transmission Date: 20211014
  Serious: No
  Sender: FDA-Public Use
  Company Number: US-ROCHE-2791016

PATIENT
  Sex: Female

DRUGS (1)
  1. ALECENSA [Suspect]
     Active Substance: ALECTINIB HYDROCHLORIDE
     Indication: LUNG NEOPLASM MALIGNANT
     Route: 048
     Dates: start: 20210208

REACTIONS (8)
  - Myalgia [Unknown]
  - Back pain [Unknown]
  - Pruritus [Unknown]
  - Constipation [Unknown]
  - Rash [Unknown]
  - Gait inability [Unknown]
  - Skin discolouration [Unknown]
  - Swelling face [Unknown]
